FAERS Safety Report 11735138 (Version 1)
Quarter: 2015Q4

REPORT INFORMATION
  Report Type: Spontaneous
  Country: US (occurrence: US)
  Receive Date: 20151113
  Receipt Date: 20151113
  Transmission Date: 20160304
  Serious: Yes (Hospitalization)
  Sender: FDA-Public Use
  Company Number: US-BEH-2015055492

PATIENT
  Sex: Female
  Weight: 23 kg

DRUGS (12)
  1. LIDOCAINE/PRILOCAINE [Concomitant]
  2. XOPENEX [Concomitant]
     Active Substance: LEVALBUTEROL HYDROCHLORIDE
  3. OXCARBAZEPINE. [Concomitant]
     Active Substance: OXCARBAZEPINE
  4. KEPPRA [Concomitant]
     Active Substance: LEVETIRACETAM
  5. EPIPEN JR [Concomitant]
     Active Substance: EPINEPHRINE
  6. BUDESONIDE. [Concomitant]
     Active Substance: BUDESONIDE
  7. PREVACID [Concomitant]
     Active Substance: LANSOPRAZOLE
  8. DIPHENHYDRAMINE. [Concomitant]
     Active Substance: DIPHENHYDRAMINE
  9. AZITHROMYCIN [Concomitant]
     Active Substance: AZITHROMYCIN ANHYDROUS
  10. HIZENTRA [Suspect]
     Active Substance: HUMAN IMMUNOGLOBULIN G
     Indication: HYPOGAMMAGLOBULINAEMIA
     Route: 058
  11. TOBI [Concomitant]
     Active Substance: TOBRAMYCIN
  12. ZONISAMIDE. [Concomitant]
     Active Substance: ZONISAMIDE

REACTIONS (1)
  - Respiratory distress [Unknown]
